FAERS Safety Report 16803292 (Version 1)
Quarter: 2019Q3

REPORT INFORMATION
  Report Type: Spontaneous
  Country: US (occurrence: US)
  Receive Date: 20190723
  Receipt Date: 20190723
  Transmission Date: 20191005
  Serious: No
  Sender: FDA-Public Use
  Company Number: None

PATIENT
  Age: 21 Year
  Sex: Female

DRUGS (1)
  1. ENBREL [Suspect]
     Active Substance: ETANERCEPT
     Indication: ANKYLOSING SPONDYLITIS

REACTIONS (5)
  - Paranasal sinus discomfort [None]
  - Nasopharyngitis [None]
  - Fatigue [None]
  - Therapy cessation [None]
  - Malaise [None]

NARRATIVE: CASE EVENT DATE: 20190723
